FAERS Safety Report 7475011-2 (Version None)
Quarter: 2011Q2

REPORT INFORMATION
  Report Type: 
  Country: None (occurrence: None)
  Receive Date: 20110509
  Receipt Date: 20110509
  Transmission Date: 20111010
  Serious: No
  Sender: FDA-Public Use
  Company Number: None

PATIENT
  Sex: Female
  Weight: 58.9676 kg

DRUGS (2)
  1. LEVAQUIN [Suspect]
     Indication: URINARY TRACT INFECTION
     Dosage: 1 TABLET ONCE DAILY PO
     Route: 048
     Dates: start: 20110405, end: 20110412
  2. LEVAQUIN [Suspect]
     Indication: NEPHROLITHIASIS
     Dosage: 1 TABLET ONCE DAILY PO
     Route: 048
     Dates: start: 20110405, end: 20110412

REACTIONS (3)
  - MUSCULOSKELETAL STIFFNESS [None]
  - PAIN IN EXTREMITY [None]
  - GAIT DISTURBANCE [None]
